FAERS Safety Report 14547973 (Version 1)
Quarter: 2018Q1

REPORT INFORMATION
  Report Type: Spontaneous
  Country: US (occurrence: US)
  Receive Date: 20180219
  Receipt Date: 20180219
  Transmission Date: 20180509
  Serious: Yes (Hospitalization, Other)
  Sender: FDA-Public Use
  Company Number: US-ALLERGAN-1808336US

PATIENT
  Sex: Female

DRUGS (1)
  1. VIBERZI [Suspect]
     Active Substance: ELUXADOLINE
     Indication: IRRITABLE BOWEL SYNDROME
     Dosage: 75 MG, QD
     Route: 048

REACTIONS (5)
  - Multi-organ disorder [Recovered/Resolved]
  - Inappropriate schedule of drug administration [Unknown]
  - Sphincter of Oddi dysfunction [Recovered/Resolved]
  - Cardiac disorder [Recovered/Resolved]
  - Hypersensitivity [Recovered/Resolved]
